FAERS Safety Report 6399175-7 (Version None)
Quarter: 2009Q4

REPORT INFORMATION
  Report Type: 
  Country: None (occurrence: None)
  Receive Date: 20091008
  Receipt Date: 20090924
  Transmission Date: 20100525
  Serious: Yes (Other)
  Sender: FDA-Public Use
  Company Number: 8052381

PATIENT
  Age: 82 Year
  Sex: Male

DRUGS (2)
  1. KEPPRA [Suspect]
     Dates: end: 20090911
  2. ANTIHYPERTENSIVE DRUGS [Concomitant]

REACTIONS (2)
  - ENCEPHALOPATHY [None]
  - HYPERTENSION [None]
